FAERS Safety Report 8027645-4 (Version None)
Quarter: 2011Q4

REPORT INFORMATION
  Report Type: 
  Country: None (occurrence: None)
  Receive Date: 20111130
  Receipt Date: 20110613
  Transmission Date: 20120403
  Serious: Yes (Other)
  Sender: FDA-Public Use
  Company Number: US201005000613

PATIENT
  Sex: Female
  Weight: 59.9 kg

DRUGS (14)
  1. TYLENOL /00020001/ (PARECETAMOL) [Concomitant]
  2. ATENOLOL [Concomitant]
  3. TRICOR [Concomitant]
  4. HYDROCHLOROTHIAZIDE W/VALSARTAN (HYDROCHLOROTHIAZIDE, VALSARTAN ) [Concomitant]
  5. VIOKASE 16 [Concomitant]
  6. NOVOLOG [Concomitant]
  7. VYTORIN [Concomitant]
  8. LANTUS (INSULIN GARGINE) [Concomitant]
  9. BYETTA [Suspect]
     Dosage: 10 UG, BID, 5 UG, BID, SUBCUTANEOUS
     Route: 058
     Dates: end: 20100201
  10. BYETTA [Suspect]
     Dosage: 10 UG, BID, 5 UG, BID, SUBCUTANEOUS
     Route: 058
     Dates: start: 20050701
  11. EXENATID UNK STRENGTH PEN, DISPOSABLE DEVICE (EXENATIDE PEN (UNKNOWN S [Concomitant]
  12. LIPITOR [Concomitant]
  13. NEXIUM [Concomitant]
  14. IRON (IRON) [Concomitant]

REACTIONS (5)
  - PANCREATITIS [None]
  - ANAEMIA [None]
  - OFF LABEL USE [None]
  - RENAL FAILURE CHRONIC [None]
  - WEIGHT DECREASED [None]
